FAERS Safety Report 14320884 (Version 1)
Quarter: 2017Q4

REPORT INFORMATION
  Report Type: Other
  Country: FI (occurrence: FI)
  Receive Date: 20171223
  Receipt Date: 20171223
  Transmission Date: 20180321
  Serious: Yes (Other)
  Sender: FDA-Public Use
  Company Number: FI-MACLEODS PHARMACEUTICALS US LTD-MAC2017007092

PATIENT

DRUGS (1)
  1. ARIPIPRAZOLE 15MG TABLET [Suspect]
     Active Substance: ARIPIPRAZOLE
     Indication: BIPOLAR DISORDER
     Dosage: 15 MG, QD, TABLET
     Route: 048

REACTIONS (2)
  - Respiratory failure [Unknown]
  - Off label use [Unknown]
